FAERS Safety Report 9306678 (Version 3)
Quarter: 2014Q1

REPORT INFORMATION
  Report Type: Report from Study
  Country: US (occurrence: US)
  Receive Date: 20130523
  Receipt Date: 20140213
  Transmission Date: 20141002
  Serious: Yes (Other)
  Sender: FDA-Public Use
  Company Number: US-ALEXION-A201300863

PATIENT
  Age: 46 Year
  Sex: Female
  Weight: 43.6 kg

DRUGS (16)
  1. SOLIRIS [Suspect]
     Indication: HAEMOLYTIC URAEMIC SYNDROME
     Dosage: 900 MG, QW X4
     Route: 042
     Dates: start: 20130219
  2. SOLIRIS [Suspect]
     Dosage: 1200 MG, Q2W
     Dates: start: 20130319
  3. DILTIAZEM [Concomitant]
     Dosage: 120 MG, BID
  4. HYDRALAZINE [Concomitant]
     Indication: HYPERTENSION
     Dosage: 100 MG, TID
  5. TUMS [Concomitant]
     Indication: HYPERPHOSPHATAEMIA
     Dosage: UNK
  6. KEPPRA [Concomitant]
     Dosage: 500 MG, BID
  7. GABAPENTIN [Concomitant]
     Dosage: 100 MG, TID
  8. B-COMPLEX [Concomitant]
     Dosage: UNK
  9. LIPITOR [Concomitant]
     Dosage: 20 MG, TID
  10. LEXAPRO [Concomitant]
     Dosage: 20 MG, QD HS
  11. XANAX [Concomitant]
     Dosage: UNK, PRN
  12. HYDROCODONE [Concomitant]
     Dosage: UNK
  13. TYLENOL [Concomitant]
     Dosage: 325 MG, QD
  14. ONDANSETRON [Concomitant]
     Dosage: 8 MG, TID PRN
  15. CITALOPRAM [Concomitant]
     Dosage: 20 MG, UNK
  16. OMNICEF [Concomitant]
     Indication: PROPHYLAXIS
     Dosage: 300 MG, QD

REACTIONS (16)
  - Anaemia [Not Recovered/Not Resolved]
  - Renal impairment [Not Recovered/Not Resolved]
  - Night sweats [Not Recovered/Not Resolved]
  - Dyspnoea [Not Recovered/Not Resolved]
  - Hypoaesthesia [Not Recovered/Not Resolved]
  - Sinus headache [Not Recovered/Not Resolved]
  - Dysphagia [Not Recovered/Not Resolved]
  - Hypertension [Recovered/Resolved]
  - Abdominal distension [Not Recovered/Not Resolved]
  - Diarrhoea [Recovered/Resolved]
  - Urinary tract infection [Unknown]
  - Hot flush [Not Recovered/Not Resolved]
  - Oedema peripheral [Not Recovered/Not Resolved]
  - Paraesthesia [Not Recovered/Not Resolved]
  - Fatigue [Not Recovered/Not Resolved]
  - Back pain [Not Recovered/Not Resolved]
